FAERS Safety Report 10026468 (Version 2)
Quarter: 2014Q2

REPORT INFORMATION
  Report Type: Spontaneous
  Country: FR (occurrence: FR)
  Receive Date: 20140321
  Receipt Date: 20140411
  Transmission Date: 20141212
  Serious: Yes (Hospitalization)
  Sender: FDA-Public Use
  Company Number: FR-PFIZER INC-2014074220

PATIENT
  Age: 46 Year
  Sex: Female
  Weight: 51 kg

DRUGS (7)
  1. SALAZOPYRINE [Suspect]
     Indication: COLITIS
     Dosage: 1 G, 2X/DAY
     Route: 048
     Dates: start: 20140201, end: 20140225
  2. CORTANCYL [Concomitant]
     Dosage: 5, UNK
  3. CORTANCYL [Concomitant]
     Dosage: 7.5 UNK, DAILY
     Dates: start: 20140223
  4. INIPOMP [Concomitant]
     Dosage: 40 UNK, UNK
  5. LEVOTHYROX [Concomitant]
  6. CERAZETTE [Concomitant]
  7. IVERMECTIN [Concomitant]
     Dosage: 1 DF, UNK
     Dates: start: 20140217, end: 20140217

REACTIONS (3)
  - Rash morbilliform [Recovering/Resolving]
  - Hepatitis [Recovered/Resolved]
  - Pruritus [Recovered/Resolved]
